FAERS Safety Report 21081915 (Version 1)
Quarter: 2022Q3

REPORT INFORMATION
  Report Type: Spontaneous
  Country: US (occurrence: None)
  Receive Date: 20220714
  Receipt Date: 20220714
  Transmission Date: 20221027
  Serious: Yes (Hospitalization)
  Sender: FDA-Public Use
  Company Number: None

PATIENT
  Age: 69 Year
  Sex: Male
  Weight: 75 kg

DRUGS (2)
  1. NIRMATRELVIR\RITONAVIR [Suspect]
     Active Substance: NIRMATRELVIR\RITONAVIR
     Indication: COVID-19 treatment
     Dosage: FREQUENCY : TWICE A DAY;?
     Dates: start: 20220630, end: 20220701
  2. TAMSULOSIN [Suspect]
     Active Substance: TAMSULOSIN
     Dosage: FREQUENCY : AT BEDTIME;?

REACTIONS (6)
  - Dizziness [None]
  - Cough [None]
  - Dyspnoea [None]
  - Orthostatic hypotension [None]
  - Drug interaction [None]
  - Hypophagia [None]

NARRATIVE: CASE EVENT DATE: 20220701
